FAERS Safety Report 21280792 (Version 1)
Quarter: 2022Q3

REPORT INFORMATION
  Report Type: Spontaneous
  Country: CA (occurrence: CA)
  Receive Date: 20220901
  Receipt Date: 20220901
  Transmission Date: 20221027
  Serious: No
  Sender: FDA-Public Use
  Company Number: CA-PFIZER INC-202201074312

PATIENT
  Age: 40 Year
  Sex: Female

DRUGS (1)
  1. PAXLOVID [Suspect]
     Active Substance: NIRMATRELVIR\RITONAVIR
     Indication: COVID-19
     Dosage: 1 DF, TWICE A DAY
     Route: 048

REACTIONS (4)
  - Nausea [Recovered/Resolved]
  - Taste disorder [Recovered/Resolved]
  - Vomiting [Recovered/Resolved]
  - Incorrect dose administered [Unknown]
